FAERS Safety Report 6976038-7 (Version None)
Quarter: 2010Q3

REPORT INFORMATION
  Report Type: 
  Country: None (occurrence: None)
  Receive Date: 20100910
  Receipt Date: 20100830
  Transmission Date: 20110219
  Serious: Yes (Hospitalization, Other)
  Sender: FDA-Public Use
  Company Number: PT-PFIZER INC-2010065116

PATIENT
  Age: 52 Year
  Sex: Female
  Weight: 56 kg

DRUGS (8)
  1. NEURONTIN [Suspect]
     Indication: NEURALGIA
     Dosage: 300 MG, 3X/DAY
     Route: 048
     Dates: start: 20100405, end: 20100412
  2. NEURONTIN [Suspect]
     Dosage: 400 MG, 3X/DAY
     Route: 048
     Dates: start: 20100413
  3. OMEPRAZOLE [Concomitant]
     Indication: PROPHYLAXIS AGAINST GASTROINTESTINAL ULCER
     Dosage: 20 MG, 2X/DAY
     Route: 048
     Dates: start: 20100404
  4. CYMBALTA [Concomitant]
     Indication: NEURALGIA
     Dosage: 60 MG, UNK
     Route: 048
     Dates: start: 20100412
  5. ACABEL [Concomitant]
     Indication: NEURALGIA
     Dosage: 8 MG, 2X/DAY (10 DAYS ON; 5 DAYS OFF)
     Dates: start: 20100412
  6. NOLOTIL /SPA/ [Concomitant]
     Dosage: 575 MG, 3X/DAY
     Route: 048
     Dates: start: 20100404
  7. TIZANIDINE [Concomitant]
     Dosage: 2 MG, 1X/DAY
     Route: 048
     Dates: start: 20100420
  8. TOPAMAX [Concomitant]
     Dosage: 50 MG, UNK
     Route: 048

REACTIONS (10)
  - ALOPECIA [None]
  - BRADYPHRENIA [None]
  - CONSTIPATION [None]
  - CONTUSION [None]
  - DIZZINESS [None]
  - GINGIVAL BLEEDING [None]
  - NEURALGIA [None]
  - ORAL HERPES [None]
  - RESPIRATORY TRACT INFECTION VIRAL [None]
  - SOMNOLENCE [None]
